FAERS Safety Report 11213367 (Version 1)
Quarter: 2015Q2

REPORT INFORMATION
  Report Type: Spontaneous
  Country: US (occurrence: US)
  Receive Date: 20150623
  Receipt Date: 20150623
  Transmission Date: 20150821
  Serious: Yes (Hospitalization, Other)
  Sender: FDA-Public Use
  Company Number: US-AKORN PHARMACEUTICALS-2015AKN00315

PATIENT
  Age: 73 Year
  Sex: Male
  Weight: 86.17 kg

DRUGS (1)
  1. RIFAMPIN. [Suspect]
     Active Substance: RIFAMPIN
     Indication: OSTEOMYELITIS
     Dosage: 1 DOSAGE UNITS, 2X/DAY
     Route: 048
     Dates: start: 201503, end: 20150520

REACTIONS (3)
  - Knee operation [Not Recovered/Not Resolved]
  - Infection [Not Recovered/Not Resolved]
  - Diplopia [Recovering/Resolving]

NARRATIVE: CASE EVENT DATE: 201505
